FAERS Safety Report 26101959 (Version 1)
Quarter: 2025Q4

REPORT INFORMATION
  Report Type: Spontaneous
  Country: EU (occurrence: None)
  Receive Date: 20251128
  Receipt Date: 20251128
  Transmission Date: 20260119
  Serious: Yes (Hospitalization, Other)
  Sender: B. BRAUN MEDICAL INC.
  Company Number: None

PATIENT
  Age: 14 Year
  Sex: Female
  Weight: 68 kg

DRUGS (20)
  1. MIDAZOLAM [Suspect]
     Active Substance: MIDAZOLAM
     Indication: Anaesthesia procedure
     Dates: start: 20240819, end: 20240819
  2. PROPOFOL [Suspect]
     Active Substance: PROPOFOL
     Indication: Anaesthesia
     Dates: start: 20240819, end: 20240819
  3. CEFAZOLIN SODIUM [Suspect]
     Active Substance: CEFAZOLIN SODIUM
     Indication: Antibiotic prophylaxis
     Dates: start: 20240819, end: 20240819
  4. ACUPAN [Suspect]
     Active Substance: NEFOPAM HYDROCHLORIDE
     Indication: Pain
     Dates: start: 20240819, end: 20240822
  5. PRIMPERAN [Suspect]
     Active Substance: METOCLOPRAMIDE HYDROCHLORIDE
     Indication: Prophylaxis of nausea and vomiting
     Dates: start: 20240819, end: 20240822
  6. ACETAMINOPHEN\CODEINE PHOSPHATE [Suspect]
     Active Substance: ACETAMINOPHEN\CODEINE PHOSPHATE
     Indication: Pain
     Dates: start: 20240819, end: 20240822
  7. DEXAMETHASONE [Suspect]
     Active Substance: DEXAMETHASONE
     Indication: Anaesthesia procedure
     Dates: start: 20240819, end: 20240819
  8. TRAMADOL HYDROCHLORIDE [Suspect]
     Active Substance: TRAMADOL HYDROCHLORIDE
     Indication: Anaesthesia procedure
     Dates: start: 20240819, end: 20240822
  9. SUFENTANIL [Suspect]
     Active Substance: SUFENTANIL
     Indication: Anaesthesia procedure
     Dates: start: 20240819, end: 20240819
  10. KETAMINE [Suspect]
     Active Substance: KETAMINE
     Indication: Anaesthesia procedure
     Dates: start: 20240819, end: 20240819
  11. CISATRACURIUM [Suspect]
     Active Substance: CISATRACURIUM
     Indication: Anaesthesia procedure
     Dates: start: 20240819, end: 20240819
  12. SEVOFLURANE [Suspect]
     Active Substance: SEVOFLURANE
     Indication: Anaesthesia procedure
  13. ROPIVACAINE HYDROCHLORIDE [Suspect]
     Active Substance: ROPIVACAINE HYDROCHLORIDE
     Indication: Anaesthesia procedure
  14. DROPERIDOL [Suspect]
     Active Substance: DROPERIDOL
     Indication: Anaesthesia procedure
     Dates: start: 20240819, end: 20240819
  15. KETOPROFEN [Suspect]
     Active Substance: KETOPROFEN
     Indication: Antiinflammatory therapy
     Dates: start: 20240819, end: 20240819
  16. NICARDIPINE HYDROCHLORIDE [Suspect]
     Active Substance: NICARDIPINE HYDROCHLORIDE
     Indication: Product used for unknown indication
     Dates: start: 20240819, end: 20240819
  17. ONDANSETRON HYDROCHLORIDE [Suspect]
     Active Substance: ONDANSETRON HYDROCHLORIDE
     Indication: Prophylaxis of nausea and vomiting
     Dates: start: 20240819, end: 20240819
  18. DICLOFENAC DIETHYLAMINE [Suspect]
     Active Substance: DICLOFENAC DIETHYLAMINE
     Indication: Antiinflammatory therapy
     Dates: start: 20240819, end: 20240822
  19. OMEPRAZOLE [Suspect]
     Active Substance: OMEPRAZOLE
     Indication: Prophylaxis
     Dates: start: 20240819, end: 20240822
  20. LOVENOX [Suspect]
     Active Substance: ENOXAPARIN SODIUM
     Indication: Anticoagulant therapy
     Dates: start: 20240819, end: 20240822

REACTIONS (4)
  - Constipation [Recovered/Resolved]
  - Urinary retention [Recovered/Resolved]
  - Anuria [Recovered/Resolved]
  - Hepatic cytolysis [Recovered/Resolved]

NARRATIVE: CASE EVENT DATE: 20240819
